FAERS Safety Report 16961474 (Version 1)
Quarter: 2019Q4

REPORT INFORMATION
  Report Type: Spontaneous
  Country: US (occurrence: US)
  Receive Date: 20191024
  Receipt Date: 20191024
  Transmission Date: 20200122
  Serious: Yes (Death)
  Sender: FDA-Public Use
  Company Number: None

PATIENT
  Age: 16 Year
  Sex: Male

DRUGS (5)
  1. TRAZODONE [Concomitant]
     Active Substance: TRAZODONE HYDROCHLORIDE
  2. LEVETIRACETAM. [Suspect]
     Active Substance: LEVETIRACETAM
     Indication: EPILEPSY
     Dates: start: 20190822, end: 20191001
  3. CLONAZEPAM. [Suspect]
     Active Substance: CLONAZEPAM
  4. CLONAZEPAM. [Concomitant]
     Active Substance: CLONAZEPAM
  5. GUAIFENISIN [Concomitant]

REACTIONS (3)
  - Lymphadenopathy [None]
  - Induration [None]
  - Headache [None]

NARRATIVE: CASE EVENT DATE: 20190925
